FAERS Safety Report 12407019 (Version 1)
Quarter: 2016Q2

REPORT INFORMATION
  Report Type: Spontaneous
  Country: US (occurrence: None)
  Receive Date: 20160525
  Receipt Date: 20160525
  Transmission Date: 20160815
  Serious: Yes (Life-Threatening, Hospitalization)
  Sender: FDA-Public Use
  Company Number: None

PATIENT
  Age: 69 Year
  Sex: Male
  Weight: 100.1 kg

DRUGS (1)
  1. PIPERACILLIN/TAZOBACTIM [Suspect]
     Active Substance: PIPERACILLIN SODIUM\TAZOBACTAM SODIUM
     Indication: UPPER RESPIRATORY TRACT INFECTION
     Route: 042
     Dates: start: 20160206, end: 20160206

REACTIONS (2)
  - Rash [None]
  - Angioedema [None]

NARRATIVE: CASE EVENT DATE: 20160207
